FAERS Safety Report 13535437 (Version 3)
Quarter: 2018Q1

REPORT INFORMATION
  Report Type: Spontaneous
  Country: US (occurrence: US)
  Receive Date: 20170511
  Receipt Date: 20180102
  Transmission Date: 20180508
  Serious: Yes (Hospitalization, Other)
  Sender: FDA-Public Use
  Company Number: US-SUN PHARMACEUTICAL INDUSTRIES LTD-2017US-140252

PATIENT
  Sex: Female

DRUGS (5)
  1. LETROZOLE. [Suspect]
     Active Substance: LETROZOLE
     Indication: BREAST CANCER RECURRENT
     Dosage: UNK
     Route: 065
     Dates: start: 2010
  2. RALOXIFENE. [Suspect]
     Active Substance: RALOXIFENE
     Indication: BREAST CANCER STAGE I
     Dosage: UNK
     Route: 065
     Dates: end: 2010
  3. TAMOXIFEN [Suspect]
     Active Substance: TAMOXIFEN
     Indication: BREAST CANCER STAGE I
  4. RALOXIFENE. [Suspect]
     Active Substance: RALOXIFENE
     Indication: OESTROGEN RECEPTOR POSITIVE BREAST CANCER
  5. TAMOXIFEN [Suspect]
     Active Substance: TAMOXIFEN
     Indication: OESTROGEN RECEPTOR POSITIVE BREAST CANCER
     Dosage: UNK
     Route: 065

REACTIONS (1)
  - Aortic aneurysm [Unknown]
